FAERS Safety Report 10591004 (Version 1)
Quarter: 2014Q4

REPORT INFORMATION
  Report Type: Report from Study
  Country: US (occurrence: US)
  Receive Date: 20141118
  Receipt Date: 20141118
  Transmission Date: 20150529
  Serious: Yes (Hospitalization, Other)
  Sender: FDA-Public Use
  Company Number: PHEH2014US022862

PATIENT

DRUGS (1)
  1. MYFORTIC [Suspect]
     Active Substance: MYCOPHENOLATE SODIUM
     Indication: PRODUCT USED FOR UNKNOWN INDICATION
     Dosage: TAKE 2 TABLET BY MOUTH TWICE DAILY
     Route: 048

REACTIONS (6)
  - VIIth nerve paralysis [Unknown]
  - Hypoaesthesia [Unknown]
  - Malaise [Unknown]
  - Hypertension [Unknown]
  - Hydronephrosis [Unknown]
  - Abdominal pain [Unknown]
